FAERS Safety Report 10045063 (Version 3)
Quarter: 2014Q2

REPORT INFORMATION
  Report Type: Spontaneous
  Country: US (occurrence: US)
  Receive Date: 20140328
  Receipt Date: 20140620
  Transmission Date: 20141212
  Serious: No
  Sender: FDA-Public Use
  Company Number: US-GILEAD-2014-0098162

PATIENT
  Sex: Female

DRUGS (5)
  1. LETAIRIS [Suspect]
     Indication: PULMONARY ARTERIAL HYPERTENSION
     Dosage: 10 MG, QD
     Route: 048
     Dates: start: 201308
  2. LETAIRIS [Suspect]
     Indication: DIASTOLIC DYSFUNCTION
  3. LETAIRIS [Suspect]
     Indication: MITRAL VALVE INCOMPETENCE
  4. LETAIRIS [Suspect]
     Indication: HYPOXIA
  5. TYVASO [Suspect]
     Indication: PRODUCT USED FOR UNKNOWN INDICATION
     Route: 065

REACTIONS (6)
  - Cough [Unknown]
  - Dysphonia [Unknown]
  - Lacrimation increased [Unknown]
  - Toothache [Unknown]
  - Sinus disorder [Unknown]
  - Sinus congestion [Unknown]
